FAERS Safety Report 12885359 (Version 1)
Quarter: 2016Q4

REPORT INFORMATION
  Report Type: Spontaneous
  Country: US (occurrence: US)
  Receive Date: 20161026
  Receipt Date: 20161026
  Transmission Date: 20170207
  Serious: Yes (Other)
  Sender: FDA-Public Use
  Company Number: US-GLAXOSMITHKLINE-US2016GSK157955

PATIENT
  Age: 56 Year
  Sex: Female

DRUGS (2)
  1. VALACYCLOVIR [Suspect]
     Active Substance: VALACYCLOVIR HYDROCHLORIDE
     Indication: HERPES ZOSTER
  2. VALACYCLOVIR [Suspect]
     Active Substance: VALACYCLOVIR HYDROCHLORIDE
     Indication: RASH VESICULAR
     Dosage: 2 UNK, UNK

REACTIONS (11)
  - Neurotoxicity [Recovering/Resolving]
  - Blood urea increased [Unknown]
  - Abnormal behaviour [Unknown]
  - Screaming [Unknown]
  - Blood creatinine increased [Unknown]
  - Red blood cell sedimentation rate increased [Unknown]
  - Myoclonus [Unknown]
  - Protein total increased [Unknown]
  - Confusional state [Unknown]
  - Ataxia [Unknown]
  - Incoherent [Unknown]
